FAERS Safety Report 8350311-2 (Version None)
Quarter: 2012Q2

REPORT INFORMATION
  Report Type: 
  Country: None (occurrence: None)
  Receive Date: 20120510
  Receipt Date: 20120426
  Transmission Date: 20120825
  Serious: Yes (Hospitalization, Other)
  Sender: FDA-Public Use
  Company Number: FR-VERTEX PHARMACEUTICALS INC.-AE-2011-004789

PATIENT
  Sex: Female
  Weight: 51 kg

DRUGS (9)
  1. FERROUS SULFATE TAB [Concomitant]
     Indication: ANAEMIA
     Dates: start: 20111126
  2. BIMATOPROST AND TIMOLOL MALEATE [Concomitant]
     Indication: GLAUCOMA
     Dates: start: 20090101
  3. FOLIC ACID [Concomitant]
  4. VX-950 [Suspect]
     Indication: HEPATITIS C
     Route: 048
     Dates: start: 20110609, end: 20110829
  5. PEGASYS [Concomitant]
     Indication: HEPATITIS C
     Route: 058
     Dates: start: 20110609, end: 20111125
  6. COPEGUS [Concomitant]
     Indication: HEPATITIS C
     Route: 065
     Dates: start: 20110609, end: 20111125
  7. BISOPROLOL FUMARATE [Concomitant]
     Indication: HYPERTENSION
  8. FOLIC ACID [Concomitant]
     Indication: ANAEMIA
     Dates: start: 20111026
  9. NEORECORMON [Concomitant]
     Indication: ANAEMIA
     Dates: start: 20110825

REACTIONS (6)
  - MALAISE [None]
  - DEHYDRATION [None]
  - ASTHENIA [None]
  - WEIGHT DECREASED [None]
  - VOMITING [None]
  - VERTIGO [None]
